FAERS Safety Report 9581219 (Version 2)
Quarter: 2013Q4

REPORT INFORMATION
  Report Type: Spontaneous
  Country: GB (occurrence: GB)
  Receive Date: 20131002
  Receipt Date: 20131002
  Transmission Date: 20140711
  Serious: Yes (Death, Other)
  Sender: FDA-Public Use
  Company Number: GB-ROCHE-1160587

PATIENT
  Age: 74 Year
  Sex: Male

DRUGS (4)
  1. RITUXIMAB [Suspect]
     Indication: RHEUMATOID ARTHRITIS
     Dosage: PREVIOUS INFUSION WAS 8 MONTHS PRIOR TO THE EVENT. RECEIVED 4 INFUSIONS OVER 5 YEARS.
     Route: 042
     Dates: start: 200711, end: 201203
  2. HYDROXYCHLOROQUINE [Concomitant]
  3. METHOTREXATE [Concomitant]
  4. SULPHASALAZINE [Concomitant]

REACTIONS (2)
  - Hemiparesis [Not Recovered/Not Resolved]
  - Progressive multifocal leukoencephalopathy [Fatal]
